FAERS Safety Report 13916749 (Version 1)
Quarter: 2017Q3

REPORT INFORMATION
  Report Type: Spontaneous
  Country: US (occurrence: US)
  Receive Date: 20170829
  Receipt Date: 20170829
  Transmission Date: 20171127
  Serious: Yes (Other)
  Sender: FDA-Public Use
  Company Number: US-BAYER-2017-160335

PATIENT
  Age: 23 Year
  Sex: Female

DRUGS (1)
  1. SKYLA [Suspect]
     Active Substance: LEVONORGESTREL
     Indication: CONTRACEPTION
     Dosage: 14 MCG/24HR, CONT
     Route: 015
     Dates: start: 20170626, end: 20170821

REACTIONS (5)
  - Coital bleeding [None]
  - Abdominal pain lower [None]
  - Genital haemorrhage [None]
  - Device issue [None]
  - Device expulsion [None]

NARRATIVE: CASE EVENT DATE: 20170630
